FAERS Safety Report 21218178 (Version 1)
Quarter: 2022Q3

REPORT INFORMATION
  Report Type: Spontaneous
  Country: US (occurrence: None)
  Receive Date: 20220816
  Receipt Date: 20220816
  Transmission Date: 20221027
  Serious: Yes (Disabling)
  Sender: FDA-Public Use
  Company Number: None

PATIENT
  Age: 66 Year
  Sex: Female
  Weight: 66.68 kg

DRUGS (25)
  1. SNORESTOP NASAL [Suspect]
     Active Substance: HOMEOPATHICS
     Indication: Snoring
     Dosage: QUANTITY: 2 SPRAYS?
     Route: 055
     Dates: start: 20220320, end: 20220606
  2. NP THYROID [Concomitant]
     Active Substance: LEVOTHYROXINE\LIOTHYRONINE
  3. FLONASE [Concomitant]
     Active Substance: FLUTICASONE PROPIONATE
  4. ASTELIN [Concomitant]
  5. ESTROGEN, TESTOSTERONE CREAM [Concomitant]
  6. DEVICE [Concomitant]
     Active Substance: DEVICE
  7. CUVITRUI SUB-Q IGG [Concomitant]
  8. VITAMINS [Concomitant]
     Active Substance: VITAMINS
  9. PRASTERONE [Concomitant]
     Active Substance: PRASTERONE
  10. DIMETHYL SULFONE [Concomitant]
     Active Substance: DIMETHYL SULFONE
  11. HYRALAUNIC ACID [Concomitant]
  12. D.I.M. [Concomitant]
  13. VITAMINS A [Concomitant]
  14. VITAMIN B [Concomitant]
     Active Substance: VITAMIN B
  15. VITAMIN C [Concomitant]
     Active Substance: ASCORBIC ACID
  16. VITAMIN D [Concomitant]
     Active Substance: VITAMIN D NOS
  17. VITAMIN E [Concomitant]
     Active Substance: .ALPHA.-TOCOPHEROL
  18. VITAMIN K [Concomitant]
     Active Substance: PHYTONADIONE
  19. FISETIN [Concomitant]
     Active Substance: FISETIN
  20. DIETARY SUPPLEMENT [Concomitant]
     Active Substance: DIETARY SUPPLEMENT
  21. HEMP PROTEIN [Concomitant]
  22. HERBALS\SPIRULINA [Concomitant]
     Active Substance: HERBALS\SPIRULINA
  23. COLLAGEN [Concomitant]
     Active Substance: COLLAGEN
  24. MINERALS [Concomitant]
     Active Substance: MINERALS
  25. FISH OIL [Concomitant]
     Active Substance: FISH OIL

REACTIONS (5)
  - Fatigue [None]
  - Nasal congestion [None]
  - Nasopharyngitis [None]
  - Sinus disorder [None]
  - Selective IgG subclass deficiency [None]

NARRATIVE: CASE EVENT DATE: 20220606
